FAERS Safety Report 6905267-3 (Version None)
Quarter: 2010Q3

REPORT INFORMATION
  Report Type: 
  Country: None (occurrence: None)
  Receive Date: 20100804
  Receipt Date: 20100726
  Transmission Date: 20110219
  Serious: Yes (Hospitalization)
  Sender: FDA-Public Use
  Company Number: US-JNJFOC-20100708439

PATIENT
  Sex: Female

DRUGS (3)
  1. DURAGESIC-100 [Suspect]
     Indication: BACK PAIN
     Route: 062
  2. DURAGESIC-100 [Suspect]
     Route: 062
  3. STEROIDS NOS [Suspect]
     Indication: RHEUMATOID ARTHRITIS
     Route: 048

REACTIONS (11)
  - ABNORMAL LOSS OF WEIGHT [None]
  - ARTHRALGIA [None]
  - ARTHRITIS [None]
  - FEAR [None]
  - HEART RATE INCREASED [None]
  - JOINT SWELLING [None]
  - PRODUCT QUALITY ISSUE [None]
  - RHEUMATOID ARTHRITIS [None]
  - WEIGHT DECREASED [None]
  - WEIGHT INCREASED [None]
  - WRONG TECHNIQUE IN DRUG USAGE PROCESS [None]
